FAERS Safety Report 9557464 (Version 1)
Quarter: 2013Q3

REPORT INFORMATION
  Report Type: Spontaneous
  Country: US (occurrence: None)
  Receive Date: 20130726
  Receipt Date: 20130726
  Transmission Date: 20140515
  Serious: Yes (Hospitalization)
  Sender: FDA-Public Use
  Company Number: UTC-022217

PATIENT
  Age: 64 Year
  Sex: Female
  Weight: 71.3 kg

DRUGS (4)
  1. REMODULIN [Suspect]
     Indication: COR PULMONALE CHRONIC
     Dosage: 118.08 UG/KG(0.08 UG/KG, 1 IN 1 MIN)
     Route: 041
     Dates: start: 20090331
  2. ADCIRCA (TADALAFIL) [Concomitant]
  3. LETAIRIS(AMBRISENTAN) [Concomitant]
  4. COUMADIN(WARFARIN SODIUM) [Concomitant]

REACTIONS (1)
  - Device related infection [None]
